FAERS Safety Report 8480198-9 (Version None)
Quarter: 2012Q2

REPORT INFORMATION
  Report Type: 
  Country: None (occurrence: None)
  Receive Date: 20120629
  Receipt Date: 20120625
  Transmission Date: 20120825
  Serious: Yes (Life-Threatening, Hospitalization)
  Sender: FDA-Public Use
  Company Number: JP-MERCK-1206USA00397

PATIENT
  Age: 27 Day
  Sex: Male

DRUGS (9)
  1. TEICOPLANIN [Concomitant]
     Indication: PNEUMONIA STAPHYLOCOCCAL
     Route: 065
  2. TEICOPLANIN [Concomitant]
     Indication: LUNG INFILTRATION
     Route: 065
  3. SOLU-CORTEF [Suspect]
     Indication: CIRCULATORY COLLAPSE
     Route: 065
  4. DECADRON [Suspect]
     Indication: CIRCULATORY COLLAPSE
     Route: 048
  5. FLUTICASONE PROPIONATE [Suspect]
     Indication: RESPIRATORY DISORDER
     Route: 055
  6. INDOMETHACIN [Concomitant]
     Indication: PATENT DUCTUS ARTERIOSUS
     Route: 065
  7. ANTILYMPHOCYTE IMMUNOGLOBULIN [Concomitant]
     Indication: PNEUMONIA STAPHYLOCOCCAL
     Route: 065
  8. CEFTAZIDIME [Concomitant]
     Indication: LUNG INFILTRATION
     Route: 065
  9. OXYGEN [Concomitant]
     Route: 065

REACTIONS (2)
  - BRONCHOPULMONARY ASPERGILLOSIS [None]
  - PNEUMONIA STAPHYLOCOCCAL [None]
